FAERS Safety Report 10252276 (Version 4)
Quarter: 2016Q1

REPORT INFORMATION
  Report Type: Spontaneous
  Country: US (occurrence: US)
  Receive Date: 20140623
  Receipt Date: 20160310
  Transmission Date: 20160525
  Serious: Yes (Death, Hospitalization, Other)
  Sender: FDA-Public Use
  Company Number: US-PFIZER INC-2014166935

PATIENT
  Age: 72 Year
  Sex: Female

DRUGS (3)
  1. SUTENT [Suspect]
     Active Substance: SUNITINIB MALATE
     Indication: RENAL CANCER METASTATIC
     Dosage: 12.5 MG QD X 28 DAYS THEN OFF 2 WEEKS
     Route: 048
     Dates: start: 201404, end: 201511
  2. OMEPRAZOLE. [Concomitant]
     Active Substance: OMEPRAZOLE
     Dosage: UNK
  3. FENTANYL. [Concomitant]
     Active Substance: FENTANYL
     Dosage: UNK

REACTIONS (11)
  - Urinary tract infection [Unknown]
  - Acute kidney injury [Unknown]
  - Diarrhoea [Unknown]
  - Death [Fatal]
  - Clostridium difficile colitis [Unknown]
  - Oral pain [Unknown]
  - Anaemia [Unknown]
  - Macular degeneration [Unknown]
  - Asthenia [Unknown]
  - Spinal disorder [Unknown]
  - Feeding disorder [Unknown]

NARRATIVE: CASE EVENT DATE: 20140616
